FAERS Safety Report 8594172-5 (Version None)
Quarter: 2012Q3

REPORT INFORMATION
  Report Type: 
  Country: None (occurrence: None)
  Receive Date: 20120814
  Receipt Date: 20120117
  Transmission Date: 20120928
  Serious: Yes (Other)
  Sender: FDA-Public Use
  Company Number: CHPA2012US012556

PATIENT
  Age: 58 Year
  Sex: Female

DRUGS (5)
  1. EXCEDRIN (MIGRAINE) [Suspect]
     Indication: MIGRAINE
     Dosage: 2 DF, DAILY (SOMETIMES 2 MORE AT NIGHT)
     Route: 048
     Dates: start: 19980101, end: 20120101
  2. EXCEDRIN EXTRA STRENGTH TABLETS [Suspect]
     Dosage: UNK DF, UNK
     Route: 048
  3. IMITREX [Concomitant]
     Indication: MIGRAINE
     Dosage: UNK, UNK
  4. VITAMINS NOS [Concomitant]
     Dosage: UNK, UNK
  5. DRUG THERAPY NOS [Concomitant]
     Indication: MIGRAINE
     Dosage: UNK, UNK

REACTIONS (6)
  - BREAST CANCER [None]
  - NEOPLASM [None]
  - ROTATOR CUFF SYNDROME [None]
  - GASTROINTESTINAL DISORDER [None]
  - PARATHYROID TUMOUR [None]
  - HYPERTENSION [None]
